FAERS Safety Report 18228998 (Version 1)
Quarter: 2020Q3

REPORT INFORMATION
  Report Type: Spontaneous
  Country: DE (occurrence: DE)
  Receive Date: 20200903
  Receipt Date: 20200903
  Transmission Date: 20201103
  Serious: Yes (Hospitalization)
  Sender: FDA-Public Use
  Company Number: DE-MYLANLABS-2020M1075343

PATIENT
  Age: 69 Year
  Sex: Female
  Weight: 47 kg

DRUGS (6)
  1. METAMIZOL                          /06276701/ [Concomitant]
     Active Substance: METAMIZOLE
     Dosage: 20 GTT, 1?1?1?1, TROPFEN
     Route: 048
  2. CLARITHROMYCIN. [Suspect]
     Active Substance: CLARITHROMYCIN
     Indication: PRODUCT USED FOR UNKNOWN INDICATION
     Dosage: NK MG, NK
     Route: 048
  3. IPRATROPIUM W/SALBUTAMOL [Concomitant]
     Active Substance: ALBUTEROL\IPRATROPIUM
     Dosage: 0.5|2.5 MG, 1?1?1?0
     Route: 055
  4. RAMIPRIL. [Concomitant]
     Active Substance: RAMIPRIL
     Dosage: 2.5 MG, 1?0?0?0
     Route: 048
  5. METOPROLOL. [Concomitant]
     Active Substance: METOPROLOL
     Dosage: 47.5 MG, 0?0?1?0
     Route: 048
  6. PREDNISOLONE. [Suspect]
     Active Substance: PREDNISOLONE
     Indication: PRODUCT USED FOR UNKNOWN INDICATION
     Dosage: 50 MILLIGRAM
     Route: 048

REACTIONS (9)
  - General physical health deterioration [Recovering/Resolving]
  - Electrolyte imbalance [Recovering/Resolving]
  - Lividity [Recovering/Resolving]
  - Chromaturia [Recovering/Resolving]
  - Liver function test increased [Recovering/Resolving]
  - Skin lesion [Recovering/Resolving]
  - Cough [Recovering/Resolving]
  - Dehydration [Recovering/Resolving]
  - Anaemia [Recovering/Resolving]

NARRATIVE: CASE EVENT DATE: 201912
